FAERS Safety Report 24698217 (Version 10)
Quarter: 2025Q4

REPORT INFORMATION
  Report Type: Report from Study
  Country: US (occurrence: US)
  Receive Date: 20241204
  Receipt Date: 20251216
  Transmission Date: 20260117
  Serious: No
  Sender: PFIZER
  Company Number: US-PFIZER INC-2018536906

PATIENT
  Age: 71 Year
  Sex: Male

DRUGS (16)
  1. TIKOSYN [Suspect]
     Active Substance: DOFETILIDE
     Indication: Atrial fibrillation
     Dosage: UNK
  2. TIKOSYN [Suspect]
     Active Substance: DOFETILIDE
     Indication: Aortic arteriosclerosis
     Dosage: 250 MCG, TAKE 1 CAPSULE BY MOUTH AT BEDTIME/NIGHTLY
     Route: 048
     Dates: start: 20220104
  3. TIKOSYN [Suspect]
     Active Substance: DOFETILIDE
     Indication: Coronary artery disease
     Dosage: 125 MG, 2X/DAY
  4. TIKOSYN [Suspect]
     Active Substance: DOFETILIDE
     Indication: Ventricular tachyarrhythmia
     Dosage: 250 MG, 1X/DAY
  5. TIKOSYN [Suspect]
     Active Substance: DOFETILIDE
     Indication: Ventricular extrasystoles
     Dosage: 1 CAPSULE AT BEDTIME
     Route: 048
     Dates: start: 20231214
  6. TIKOSYN [Suspect]
     Active Substance: DOFETILIDE
     Indication: Cardiac disorder
  7. TIKOSYN [Suspect]
     Active Substance: DOFETILIDE
     Indication: Hypertensive heart disease
  8. OLMESARTAN [Concomitant]
     Active Substance: OLMESARTAN
     Dosage: UNK
  9. NORVASC [Concomitant]
     Active Substance: AMLODIPINE BESYLATE
     Dosage: 1 TABLET AS NEEDED (SYSTOLIC MORE THAN 150)
     Route: 048
     Dates: start: 20240112
  10. METOPROLOL [Concomitant]
     Active Substance: METOPROLOL
     Dosage: 50 MG, 2X/DAY
  11. SPIRONOLACTONE [Concomitant]
     Active Substance: SPIRONOLACTONE
     Dosage: 25 MG
  12. TOPROL XL [Concomitant]
     Active Substance: METOPROLOL SUCCINATE
     Dosage: 50 MG, 2X/DAY
  13. LIPITOR [Concomitant]
     Active Substance: ATORVASTATIN CALCIUM
     Dosage: TAKE 1 TABLET BY MOUTH IN THE MORNING FOR 180 DAYS
     Route: 048
     Dates: start: 20240108, end: 20240930
  14. XALATAN [Concomitant]
     Active Substance: LATANOPROST
     Dosage: PLACE 1 DROP INTO BOTH EYES IN THE MORNING
  15. OZEMPIC [Concomitant]
     Active Substance: SEMAGLUTIDE
     Dosage: UNK
  16. WARFARIN [Concomitant]
     Active Substance: WARFARIN
     Dosage: UNK

REACTIONS (4)
  - Gastrooesophageal reflux disease [Unknown]
  - Off label use [Unknown]
  - Product prescribing error [Unknown]
  - Product dispensing issue [Unknown]

NARRATIVE: CASE EVENT DATE: 20220104
